FAERS Safety Report 7273051-X (Version None)
Quarter: 2011Q1

REPORT INFORMATION
  Report Type: 
  Country: None (occurrence: None)
  Receive Date: 20110203
  Receipt Date: 20110126
  Transmission Date: 20110831
  Serious: Yes (Other)
  Sender: FDA-Public Use
  Company Number: US-MYLANLABS-2011S1001917

PATIENT
  Sex: Female
  Weight: 80.74 kg

DRUGS (8)
  1. CELEBREX [Suspect]
     Indication: ABDOMINAL SYMPTOM
     Route: 048
     Dates: start: 20080101, end: 20080101
  2. LEVOTHYROXINE [Concomitant]
     Indication: HYPOTHYROIDISM
  3. LIPITOR [Suspect]
     Indication: BLOOD CHOLESTEROL INCREASED
     Route: 048
     Dates: start: 19980101, end: 20050101
  4. LIPITOR [Suspect]
     Route: 048
     Dates: start: 20090101
  5. CELEBREX [Suspect]
     Indication: MUSCLE DISORDER
     Route: 048
     Dates: start: 20080101, end: 20080101
  6. LOVASTATIN [Suspect]
     Indication: BLOOD CHOLESTEROL INCREASED
     Dates: start: 20080101, end: 20080101
  7. LIPITOR [Suspect]
     Route: 048
     Dates: start: 20050101, end: 20080101
  8. SIMVASTATIN [Suspect]
     Indication: BLOOD CHOLESTEROL INCREASED
     Route: 048
     Dates: start: 20080101, end: 20080101

REACTIONS (6)
  - DRUG INEFFECTIVE [None]
  - NAUSEA [None]
  - FATIGUE [None]
  - MUSCLE DISORDER [None]
  - GASTROINTESTINAL DISORDER [None]
  - BLOOD CHOLESTEROL INCREASED [None]
